FAERS Safety Report 14304489 (Version 1)
Quarter: 2017Q4

REPORT INFORMATION
  Report Type: Spontaneous
  Country: JP (occurrence: JP)
  Receive Date: 20171219
  Receipt Date: 20171219
  Transmission Date: 20180321
  Serious: Yes (Hospitalization)
  Sender: FDA-Public Use
  Company Number: JP-OTSUKA-007249

PATIENT
  Age: 54 Year
  Sex: Male
  Weight: 62 kg

DRUGS (16)
  1. RISPERIDONE. [Concomitant]
     Active Substance: RISPERIDONE
     Indication: IRRITABILITY
     Dosage: 1 ML, QM
     Route: 048
     Dates: start: 20090605, end: 20090617
  2. TRIAZOLAM. [Concomitant]
     Active Substance: TRIAZOLAM
     Dosage: TABLET
     Dates: end: 20090617
  3. FLUVOXAMINE [Concomitant]
     Active Substance: FLUVOXAMINE
     Dosage: TABLET
     Dates: end: 20090617
  4. RISPERIDONE. [Concomitant]
     Active Substance: RISPERIDONE
     Dosage: LIQUID  ALSO TAKEN AS TABLETS   DOSE INCREASED TO 6 MG/D
     Dates: start: 20090605, end: 20090617
  5. RISPERIDONE. [Concomitant]
     Active Substance: RISPERIDONE
     Dosage: 6 MG, QD
     Route: 048
     Dates: start: 20090721
  6. BIPERIDEN HYDROCHLORIDE [Concomitant]
     Active Substance: BIPERIDEN HYDROCHLORIDE
     Indication: EXTRAPYRAMIDAL DISORDER
     Dosage: 3 MG, QD
     Route: 048
     Dates: end: 20090617
  7. FLUMOXAMINE MALEATE [Concomitant]
     Indication: DEPRESSIVE SYMPTOM
     Dosage: 50 MG, QD
     Route: 048
     Dates: end: 20090617
  8. TRIAZOLAM. [Concomitant]
     Active Substance: TRIAZOLAM
     Indication: INSOMNIA
     Dosage: 0.25 MG, QD
     Route: 048
     Dates: end: 20090617
  9. ABILIFY [Suspect]
     Active Substance: ARIPIPRAZOLE
     Indication: SCHIZOPHRENIA
     Dosage: 12 MG, QD
     Route: 048
     Dates: start: 20090515, end: 20090604
  10. ABILIFY [Suspect]
     Active Substance: ARIPIPRAZOLE
     Dosage: 12 MG, BID
     Route: 048
     Dates: start: 20090605, end: 20090617
  11. RISPERIDONE. [Concomitant]
     Active Substance: RISPERIDONE
     Indication: SCHIZOPHRENIA
     Dosage: 4 MG, QD
     Route: 048
     Dates: end: 20090617
  12. OLANZAPINE. [Concomitant]
     Active Substance: OLANZAPINE
     Indication: SCHIZOPHRENIA
     Dosage: 10 MG, QD
     Route: 048
     Dates: end: 20090617
  13. FLUNITRAZEPAM [Concomitant]
     Active Substance: FLUNITRAZEPAM
     Dosage: TABLET
     Dates: end: 20090617
  14. FLUNITRAZEPAM [Concomitant]
     Active Substance: FLUNITRAZEPAM
     Indication: INSOMNIA
     Dosage: 1 MG, QD
     Route: 048
     Dates: end: 20090617
  15. ETIZOLAM [Concomitant]
     Active Substance: ETIZOLAM
     Indication: INSOMNIA
     Dosage: 1.5 MG, QD
     Route: 048
     Dates: end: 20090617
  16. OLANZAPINE. [Concomitant]
     Active Substance: OLANZAPINE
     Dosage: TABLET
     Dates: end: 20090617

REACTIONS (1)
  - Dissociative amnesia [Recovering/Resolving]

NARRATIVE: CASE EVENT DATE: 20090617
